FAERS Safety Report 16898057 (Version 4)
Quarter: 2020Q1

REPORT INFORMATION
  Report Type: Report from Study
  Country: US (occurrence: US)
  Receive Date: 20191009
  Receipt Date: 20200316
  Transmission Date: 20200409
  Serious: Yes (Hospitalization, Other)
  Sender: FDA-Public Use
  Company Number: US-AMGEN-USASL2019139164

PATIENT
  Age: 54 Year
  Sex: Female

DRUGS (2)
  1. KYPROLIS [Suspect]
     Active Substance: CARFILZOMIB
     Indication: PLASMA CELL MYELOMA
     Dosage: UNK, QWK
     Route: 065
     Dates: end: 2019
  2. KYPROLIS [Suspect]
     Active Substance: CARFILZOMIB
     Dosage: UNK, QWK
     Route: 065
     Dates: start: 2019

REACTIONS (14)
  - Pain [Unknown]
  - Fatigue [Not Recovered/Not Resolved]
  - Vomiting [Unknown]
  - Pyrexia [Unknown]
  - Haematochezia [Unknown]
  - Monoclonal immunoglobulin increased [Recovering/Resolving]
  - Vascular access site infection [Unknown]
  - Thrombosis [Unknown]
  - Dyspnoea [Not Recovered/Not Resolved]
  - Cognitive disorder [Unknown]
  - Chills [Unknown]
  - Diarrhoea [Unknown]
  - Staphylococcal sepsis [Unknown]
  - Malaise [Unknown]

NARRATIVE: CASE EVENT DATE: 2019
